FAERS Safety Report 7785592-7 (Version None)
Quarter: 2011Q3

REPORT INFORMATION
  Report Type: 
  Country: None (occurrence: None)
  Receive Date: 20110929
  Receipt Date: 20110919
  Transmission Date: 20111222
  Serious: Yes (Hospitalization, Other)
  Sender: FDA-Public Use
  Company Number: US-BAYER-201022566NA

PATIENT
  Age: 49 Year
  Sex: Female
  Weight: 100.68 kg

DRUGS (4)
  1. YASMIN [Suspect]
     Indication: PREMENSTRUAL SYNDROME
     Dosage: UNK
     Dates: start: 20060101
  2. YASMIN [Suspect]
     Dosage: UNK
     Dates: start: 20040901, end: 20050101
  3. NSAID'S [Concomitant]
  4. POTASSIUM CHLORIDE [Concomitant]
     Dosage: UNK
     Dates: start: 20100301

REACTIONS (3)
  - DEEP VEIN THROMBOSIS [None]
  - OEDEMA PERIPHERAL [None]
  - PAIN IN EXTREMITY [None]
